FAERS Safety Report 4652027-2 (Version None)
Quarter: 2005Q2

REPORT INFORMATION
  Report Type: 
  Country: None (occurrence: None)
  Receive Date: 20050502
  Receipt Date: 20050502
  Transmission Date: 20051028
  Serious: Yes (Other)
  Sender: FDA-Public Use
  Company Number: None

PATIENT
  Age: 86 Year
  Sex: Female
  Weight: 57.879 kg

DRUGS (1)
  1. METOPROLOL 50 MG [Suspect]
     Indication: HYPERTENSION
     Dosage: PO BID #60
     Route: 048

REACTIONS (1)
  - HEADACHE [None]
